FAERS Safety Report 6071292-0 (Version None)
Quarter: 2009Q1

REPORT INFORMATION
  Report Type: 
  Country: None (occurrence: None)
  Receive Date: 20090205
  Receipt Date: 20081010
  Transmission Date: 20090719
  Serious: Yes (Hospitalization)
  Sender: FDA-Public Use
  Company Number: 2009-00002

PATIENT
  Sex: Female
  Weight: 55.3388 kg

DRUGS (1)
  1. NEUTROGENA ON THE SPOT ACNE PATCH: 2% SALICYLIC ACID [Suspect]
     Indication: ACNE
     Dates: start: 20081007

REACTIONS (2)
  - SUBCUTANEOUS ABSCESS [None]
  - SWELLING FACE [None]
